FAERS Safety Report 9647639 (Version 1)
Quarter: 2013Q4

REPORT INFORMATION
  Report Type: Spontaneous
  Country: US (occurrence: US)
  Receive Date: 20131028
  Receipt Date: 20131028
  Transmission Date: 20140711
  Serious: No
  Sender: FDA-Public Use
  Company Number: US-009507513-1310USA009819

PATIENT
  Sex: Female

DRUGS (15)
  1. ZOCOR [Suspect]
     Indication: BLOOD CHOLESTEROL INCREASED
     Dosage: UNK
     Route: 048
     Dates: end: 2011
  2. ZETIA [Suspect]
     Indication: BLOOD CHOLESTEROL INCREASED
     Dosage: UNK
     Route: 048
     Dates: end: 2011
  3. WARFARIN [Concomitant]
  4. VERAPAMIL [Concomitant]
  5. OMEPRAZOLE [Concomitant]
  6. METHOTREXATE [Concomitant]
  7. MAGNESIUM OXIDE [Concomitant]
  8. SYNTHROID [Concomitant]
  9. LOSARTAN POTASSIUM TABLETS [Concomitant]
  10. FOLIC ACID [Concomitant]
  11. FUROSEMIDE [Concomitant]
  12. FEXOFENADINE HYDROCHLORIDE [Concomitant]
  13. DIGOXIN [Concomitant]
  14. BROVANA [Concomitant]
  15. PROCRIT [Concomitant]

REACTIONS (1)
  - Drug ineffective [Recovered/Resolved]
